FAERS Safety Report 6103212-4 (Version None)
Quarter: 2009Q1

REPORT INFORMATION
  Report Type: 
  Country: None (occurrence: None)
  Receive Date: 20090305
  Receipt Date: 20090220
  Transmission Date: 20090719
  Serious: Yes (Life-Threatening)
  Sender: FDA-Public Use
  Company Number: RU-PFIZER INC-2009174493

PATIENT

DRUGS (13)
  1. ANIDULAFUNGIN [Suspect]
     Indication: SYSTEMIC CANDIDA
     Dosage: 100 MG, 1X/DAY
     Route: 042
     Dates: start: 20090216, end: 20090219
  2. CILASTATIN [Concomitant]
     Dosage: UNK
     Route: 042
     Dates: start: 20090204
  3. FLUCONAZOLE [Concomitant]
     Route: 042
     Dates: start: 20090204, end: 20090211
  4. IMATINIB [Concomitant]
     Dosage: UNK
     Route: 048
     Dates: start: 20090204
  5. AMPHOTERICIN B [Concomitant]
     Route: 042
     Dates: start: 20090213, end: 20090213
  6. CLARITHROMYCIN [Concomitant]
     Route: 042
     Dates: start: 20090204, end: 20090216
  7. CLARITHROMYCIN [Concomitant]
     Dates: start: 20090218
  8. CLEMASTINE [Concomitant]
     Dosage: UNK
     Route: 042
     Dates: start: 20090218
  9. DEXAMETHASONE [Concomitant]
     Route: 042
     Dates: start: 20090218, end: 20090218
  10. METAMIZOLE SODIUM [Concomitant]
     Route: 042
     Dates: start: 20090218, end: 20090218
  11. CHLOROPYRAMINE [Concomitant]
     Route: 042
     Dates: start: 20090218, end: 20090218
  12. LACTOBACILLUS BIFIDUS, LYOPHILIZED [Concomitant]
     Route: 048
     Dates: start: 20090219
  13. SACCHAROMYCES BOULARDII [Concomitant]
     Route: 048
     Dates: start: 20090219

REACTIONS (1)
  - BRONCHOSPASM [None]
